FAERS Safety Report 25889933 (Version 1)
Quarter: 2025Q4

REPORT INFORMATION
  Report Type: Spontaneous
  Country: US (occurrence: None)
  Receive Date: 20251006
  Receipt Date: 20251006
  Transmission Date: 20260118
  Serious: Yes (Hospitalization)
  Sender: FDA-CTU
  Company Number: None

PATIENT
  Sex: Female

DRUGS (9)
  1. VYNDAMAX [Suspect]
     Active Substance: TAFAMIDIS
     Indication: Cardiac amyloidosis
     Dosage: TAKE 1 CAPSULE BY MOUTH EVERY DAY
     Route: 048
     Dates: start: 20221109
  2. ALBUTEROL AER HFA [Concomitant]
  3. AZELASTINE SPR0.1^% [Concomitant]
  4. CALCIUM POW [Concomitant]
  5. CHOLECALCIF POW [Concomitant]
  6. GUAIFENESIN POW [Concomitant]
  7. SALINE NASAL SPR 0.65% [Concomitant]
  8. TYLENOL CAP 325MG [Concomitant]
  9. XARELTO [Concomitant]
     Active Substance: RIVAROXABAN

REACTIONS (1)
  - Fall [None]
